FAERS Safety Report 12777251 (Version 1)
Quarter: 2016Q3

REPORT INFORMATION
  Report Type: Report from Study
  Country: IT (occurrence: IT)
  Receive Date: 20160924
  Receipt Date: 20160924
  Transmission Date: 20161109
  Serious: Yes (Death, Hospitalization)
  Sender: FDA-Public Use
  Company Number: IT-ABBVIE-16K-083-1736271-00

PATIENT
  Age: 68 Year
  Sex: Male
  Weight: 80 kg

DRUGS (1)
  1. DUODOPA [Suspect]
     Active Substance: CARBIDOPA\LEVODOPA
     Indication: PARKINSON^S DISEASE
     Dosage: MD 4.5(+3); CR 2.6; ED 2
     Route: 050
     Dates: start: 20101105, end: 20160818

REACTIONS (2)
  - Condition aggravated [Fatal]
  - Cardiac arrest [Fatal]

NARRATIVE: CASE EVENT DATE: 20160818
